FAERS Safety Report 22100533 (Version 1)
Quarter: 2023Q1

REPORT INFORMATION
  Report Type: Spontaneous
  Country: US (occurrence: None)
  Receive Date: 20230316
  Receipt Date: 20230316
  Transmission Date: 20230417
  Serious: No
  Sender: FDA-Public Use
  Company Number: 2022A396785

PATIENT
  Age: 30525 Day
  Sex: Male
  Weight: 106.6 kg

DRUGS (1)
  1. TEZSPIRE [Suspect]
     Active Substance: TEZEPELUMAB-EKKO
     Indication: Asthma
     Dosage: 210MG (110MG/ML) VIA SUBCUTANEOUS INJECTION ONCE EVERY 4 WEEKS110MG/ML EVERY FOUR WEEKS
     Route: 058
     Dates: start: 20221121

REACTIONS (1)
  - Arthralgia [Not Recovered/Not Resolved]

NARRATIVE: CASE EVENT DATE: 20221122
